FAERS Safety Report 24706449 (Version 1)
Quarter: 2024Q4

REPORT INFORMATION
  Report Type: Report from Study
  Country: PH (occurrence: PH)
  Receive Date: 20241206
  Receipt Date: 20241206
  Transmission Date: 20250115
  Serious: Yes (Death)
  Sender: OTSUKA
  Company Number: PH-OTSUKA-2024_009734

PATIENT
  Age: 72 Year
  Sex: Male

DRUGS (3)
  1. TOLVAPTAN [Suspect]
     Active Substance: TOLVAPTAN
     Indication: Cardiac failure congestive
     Dosage: 0.5 DF, QD (15 MG HALF TABLET A DAY)
     Route: 048
     Dates: start: 20221015, end: 20241102
  2. TOLVAPTAN [Suspect]
     Active Substance: TOLVAPTAN
     Dosage: 1 DF, QD (15 MG ONE TABLET A DAY)
     Route: 065
  3. TOLVAPTAN [Suspect]
     Active Substance: TOLVAPTAN
     Dosage: 2 DF, QD (15 MG TWO TABLETS A DAY)
     Route: 065

REACTIONS (4)
  - Cardiac failure congestive [Fatal]
  - Wrong technique in product usage process [Unknown]
  - Underdose [Unknown]
  - Overdose [Unknown]

NARRATIVE: CASE EVENT DATE: 20221015
